FAERS Safety Report 9890293 (Version 3)
Quarter: 2014Q1

REPORT INFORMATION
  Report Type: Spontaneous
  Country: AU (occurrence: AU)
  Receive Date: 20140212
  Receipt Date: 20140317
  Transmission Date: 20141002
  Serious: Yes (Death, Hospitalization, Other)
  Sender: FDA-Public Use
  Company Number: AU-BRISTOL-MYERS SQUIBB COMPANY-20152831

PATIENT
  Age: 67 Year
  Sex: Male

DRUGS (10)
  1. ERBITUX [Suspect]
     Dosage: 500MG MAINTENANCE-06-JAN-2014(100 MG BATCH NO:)
     Dates: start: 20131230
  2. CLEXANE [Concomitant]
     Indication: PULMONARY EMBOLISM
  3. IRINOTECAN [Concomitant]
     Dosage: 16DE13 AND 31DE13
     Dates: start: 20131127
  4. 5-FLUOROURACIL [Concomitant]
     Dosage: 16-DEC-2013, 31-DEC-2013
     Dates: start: 20131127
  5. CIPRAMIL [Concomitant]
  6. NEXIUM [Concomitant]
  7. PANADOL [Concomitant]
     Dosage: 2 DF:2UTS
  8. FENTANYL PATCH [Concomitant]
     Dosage: 1PATCH (EVERY 3RD DAY)
  9. ENDONE [Concomitant]
     Dosage: 1DF:5 TO 10MG
  10. PREGABALIN [Concomitant]
     Dates: start: 20140115

REACTIONS (2)
  - Alveolitis [Fatal]
  - Hydronephrosis [Unknown]
